FAERS Safety Report 14835030 (Version 1)
Quarter: 2018Q2

REPORT INFORMATION
  Report Type: Spontaneous
  Country: DE (occurrence: DE)
  Receive Date: 20180502
  Receipt Date: 20180502
  Transmission Date: 20180711
  Serious: Yes (Hospitalization)
  Sender: FDA-Public Use
  Company Number: DE-CONCORDIA PHARMACEUTICALS INC.-E2B_00011475

PATIENT
  Age: 65 Year
  Sex: Female
  Weight: 80 kg

DRUGS (9)
  1. METOPROLOL. [Suspect]
     Active Substance: METOPROLOL
     Dosage: 23.75 MG, 0-0-0.5-0, TABLETTEN
     Route: 048
  2. CLONIDINE. [Suspect]
     Active Substance: CLONIDINE
     Dosage: 0.3 MG, 0.5-1-0-0, TABLETTEN
     Route: 048
  3. PANTOZOL [Concomitant]
     Active Substance: PANTOPRAZOLE SODIUM
     Dosage: 20 MG, TABLETTEN
     Route: 048
  4. PROPAFENON [Suspect]
     Active Substance: PROPAFENONE
     Dosage: 150 MG, 1-0-1-0, TABLETTEN
     Route: 048
  5. ALDACTONE [Suspect]
     Active Substance: SPIRONOLACTONE
     Dosage: 50 MG, 1-1-0-0, TABLETTEN
     Route: 048
  6. ATORVASTATIN [Concomitant]
     Active Substance: ATORVASTATIN
     Dosage: 20 MG, 0-0-1-0, TABLETTEN
     Route: 048
  7. ELIQUIS [Concomitant]
     Active Substance: APIXABAN
     Dosage: 5 MG, 1-0-1-0, TABLETTEN
     Route: 048
  8. CARAMLO 8 MG/5 MG [Suspect]
     Active Substance: AMLODIPINE BESYLATE\CANDESARTAN CILEXETIL
     Dosage: 8|5 MG, 1-0-1-0, TABLETTEN
     Route: 048
  9. BIFITERAL BEUTEL [Concomitant]
     Dosage: BEDARF, BEUTEL
     Route: 048

REACTIONS (5)
  - Syncope [Unknown]
  - Bradyarrhythmia [Unknown]
  - Bradycardia [Unknown]
  - Hyperkalaemia [Unknown]
  - Dizziness [Unknown]
